FAERS Safety Report 22177147 (Version 1)
Quarter: 2023Q2

REPORT INFORMATION
  Report Type: Spontaneous
  Country: CA (occurrence: CA)
  Receive Date: 20230405
  Receipt Date: 20230405
  Transmission Date: 20230722
  Serious: Yes (Life-Threatening, Hospitalization)
  Sender: FDA-Public Use
  Company Number: CA-009507513-2007CAN008558

PATIENT
  Age: 61 Year
  Sex: Female
  Weight: 58 kg

DRUGS (1)
  1. KEYTRUDA [Suspect]
     Active Substance: PEMBROLIZUMAB
     Indication: Non-small cell lung cancer metastatic
     Dosage: 125.0 MG, 1 EVERY 3 WEEKS; DOSAGE FORM: SOLUTION INTRAVENOUS. PRODUCT DESCRIPTION: FOR I.V INFUSION
     Route: 042
     Dates: start: 20190610, end: 20191127

REACTIONS (1)
  - Colitis [Recovering/Resolving]

NARRATIVE: CASE EVENT DATE: 20191218
